FAERS Safety Report 24816139 (Version 2)
Quarter: 2025Q1

REPORT INFORMATION
  Report Type: Spontaneous
  Country: AU (occurrence: AU)
  Receive Date: 20250107
  Receipt Date: 20250123
  Transmission Date: 20250409
  Serious: Yes (Other)
  Sender: PURDUE
  Company Number: AU-NAPPMUNDI-GBR-2024-0122542

PATIENT
  Age: 6 Decade
  Sex: Male

DRUGS (4)
  1. OXYCODONE HYDROCHLORIDE [Suspect]
     Active Substance: OXYCODONE HYDROCHLORIDE
     Indication: Pain
     Route: 048
     Dates: start: 2008
  2. OXYCODONE HYDROCHLORIDE [Suspect]
     Active Substance: OXYCODONE HYDROCHLORIDE
     Route: 048
  3. OXYCODONE HYDROCHLORIDE [Suspect]
     Active Substance: OXYCODONE HYDROCHLORIDE
     Route: 048
  4. DURAGESIC [Concomitant]
     Active Substance: FENTANYL
     Indication: Pain
     Route: 062
     Dates: start: 2008

REACTIONS (8)
  - Myocardial infarction [Unknown]
  - Seizure [Unknown]
  - Drug resistance [Unknown]
  - Muscle spasms [Unknown]
  - Pain [Unknown]
  - Product packaging quantity issue [Unknown]
  - Therapeutic product effect variable [Unknown]
  - Wound [Unknown]

NARRATIVE: CASE EVENT DATE: 20220601
